FAERS Safety Report 12552644 (Version 1)
Quarter: 2016Q3

REPORT INFORMATION
  Report Type: Spontaneous
  Country: US (occurrence: None)
  Receive Date: 20160712
  Receipt Date: 20160712
  Transmission Date: 20161109
  Serious: Yes (Hospitalization)
  Sender: FDA-Public Use
  Company Number: None

PATIENT
  Age: 31 Year
  Sex: Male
  Weight: 131.8 kg

DRUGS (5)
  1. MERCAPTOPURINE. [Suspect]
     Active Substance: MERCAPTOPURINE
     Dates: end: 20160620
  2. CYTARABINE. [Suspect]
     Active Substance: CYTARABINE
     Dates: end: 20160616
  3. ERWINIA ASPARAGINASE [Suspect]
     Active Substance: ASPARAGINASE ERWINIA CHRYSANTHEMI
     Dates: end: 20160627
  4. CYCLOPHOSPHAMIDE. [Suspect]
     Active Substance: CYCLOPHOSPHAMIDE
     Dates: end: 20160607
  5. METHOTREXATE. [Suspect]
     Active Substance: METHOTREXATE
     Dates: end: 20160627

REACTIONS (5)
  - Vomiting [None]
  - Enterococcal infection [None]
  - Nausea [None]
  - Diarrhoea [None]
  - Gastrointestinal inflammation [None]

NARRATIVE: CASE EVENT DATE: 20160629
